FAERS Safety Report 15547807 (Version 6)
Quarter: 2019Q1

REPORT INFORMATION
  Report Type: Spontaneous
  Country: US (occurrence: US)
  Receive Date: 20181024
  Receipt Date: 20190305
  Transmission Date: 20190417
  Serious: No
  Sender: FDA-Public Use
  Company Number: US-PFIZER INC-2018282108

PATIENT
  Age: 71 Year
  Sex: Female
  Weight: 57 kg

DRUGS (8)
  1. LYRICA [Suspect]
     Active Substance: PREGABALIN
     Dosage: 375 MG, DAILY (75 MG, #150, 1 PO FIVE TIMES DAILY)
     Route: 048
  2. BUTRANS [Concomitant]
     Active Substance: BUPRENORPHINE
     Dosage: UNK
  3. LYRICA [Suspect]
     Active Substance: PREGABALIN
     Indication: NERVE INJURY
     Dosage: 75 MG, 1X/DAY (CUTTING 150 MG IN HALF)
     Dates: start: 2018, end: 2018
  4. LYRICA [Suspect]
     Active Substance: PREGABALIN
     Dosage: 600 MG A DAY
  5. LYRICA [Suspect]
     Active Substance: PREGABALIN
     Dosage: 425
  6. LYRICA [Suspect]
     Active Substance: PREGABALIN
     Indication: PAIN IN EXTREMITY
     Dosage: 375 MG, DAILY (75 MG TWO IN THE MORNING, TWO AT BEDTIME AND THEN ONE AT ABOUT 3 IN AFTERNOON)
  7. LYRICA [Suspect]
     Active Substance: PREGABALIN
     Indication: COMPLEX REGIONAL PAIN SYNDROME
     Dosage: 150 MG, 2X/DAY,(75 MILLIGRAMS, TWO OF THOSE LYRICA)
     Route: 048
     Dates: start: 20180327, end: 2018
  8. CYMBALTA [Concomitant]
     Active Substance: DULOXETINE HYDROCHLORIDE
     Indication: NEURALGIA
     Dosage: 20 MG, 1X/DAY

REACTIONS (8)
  - Dizziness [Unknown]
  - Withdrawal syndrome [Unknown]
  - Nausea [Unknown]
  - Influenza [Unknown]
  - Hot flush [Unknown]
  - Intentional product misuse [Unknown]
  - Intentional underdose [Unknown]
  - Product use issue [Unknown]

NARRATIVE: CASE EVENT DATE: 2018
